FAERS Safety Report 18973388 (Version 1)
Quarter: 2021Q1

REPORT INFORMATION
  Report Type: Spontaneous
  Country: US (occurrence: US)
  Receive Date: 20210305
  Receipt Date: 20210305
  Transmission Date: 20210420
  Serious: No
  Sender: FDA-Public Use
  Company Number: None

PATIENT
  Age: 67 Year
  Sex: Female
  Weight: 83.25 kg

DRUGS (1)
  1. UPNEEQ [Suspect]
     Active Substance: OXYMETAZOLINE HYDROCHLORIDE
     Indication: EYELID PTOSIS
     Dosage: ?          QUANTITY:1 DROP(S);?
     Route: 047
     Dates: start: 20210302, end: 20210302

REACTIONS (2)
  - Migraine with aura [None]
  - Blood pressure increased [None]

NARRATIVE: CASE EVENT DATE: 20210302
